FAERS Safety Report 8991041 (Version 1)
Quarter: 2012Q4

REPORT INFORMATION
  Report Type: Spontaneous
  Country: SZ (occurrence: None)
  Receive Date: 20121221
  Receipt Date: 20121221
  Transmission Date: 20130627
  Serious: Yes (Hospitalization)
  Sender: FDA-Public Use
  Company Number: 20120762

PATIENT
  Age: 31 Year
  Sex: Female

DRUGS (3)
  1. VENOFER (IRON SUCROSE INJECTION-VIFOR) (IRON SUCROSE INJECTION) 20 MG/ML [Suspect]
     Indication: ANEMIA
     Dosage: 1 ampoule ( 1 in 1
     Route: 042
     Dates: start: 20121126
  2. LANSOPRAZOLE [Concomitant]
  3. ALPRAZOLAM [Concomitant]

REACTIONS (6)
  - Syncope [None]
  - Abdominal pain upper [None]
  - Hypotension [None]
  - Condition aggravated [None]
  - Blood pressure fluctuation [None]
  - Ascites [None]
